FAERS Safety Report 16092582 (Version 1)
Quarter: 2019Q1

REPORT INFORMATION
  Report Type: Spontaneous
  Country: RU (occurrence: RU)
  Receive Date: 20190319
  Receipt Date: 20190319
  Transmission Date: 20190418
  Serious: Yes (Hospitalization)
  Sender: FDA-Public Use
  Company Number: PHHY2019RU061043

PATIENT
  Age: 41 Year
  Sex: Male
  Weight: 89 kg

DRUGS (1)
  1. EDICIN [Suspect]
     Active Substance: VANCOMYCIN HYDROCHLORIDE
     Indication: FEBRILE NEUTROPENIA
     Dosage: 2 G, QD
     Route: 042
     Dates: start: 20190220, end: 20190220

REACTIONS (2)
  - Hyperthermia [Recovering/Resolving]
  - Pruritus [Recovering/Resolving]

NARRATIVE: CASE EVENT DATE: 20190220
